FAERS Safety Report 12092359 (Version 1)
Quarter: 2016Q1

REPORT INFORMATION
  Report Type: Spontaneous
  Country: US (occurrence: None)
  Receive Date: 20160217
  Receipt Date: 20160217
  Transmission Date: 20160526
  Serious: No
  Sender: FDA-Public Use
  Company Number: None

PATIENT
  Age: 47 Year
  Sex: Female

DRUGS (1)
  1. LIDOCAINE PATCH 5% MYLAN [Suspect]
     Active Substance: LIDOCAINE
     Indication: OSTEOARTHRITIS
     Route: 061
     Dates: start: 20151012, end: 20160130

REACTIONS (2)
  - Drug effect decreased [None]
  - Product adhesion issue [None]

NARRATIVE: CASE EVENT DATE: 20151012
